FAERS Safety Report 20521536 (Version 7)
Quarter: 2022Q2

REPORT INFORMATION
  Report Type: Spontaneous
  Country: US (occurrence: US)
  Receive Date: 20220226
  Receipt Date: 20220521
  Transmission Date: 20220721
  Serious: Yes (Hospitalization, Other)
  Sender: FDA-Public Use
  Company Number: US-UNITED THERAPEUTICS-UNT-2022-004270

PATIENT
  Age: 30 Year
  Sex: Female

DRUGS (5)
  1. REMODULIN [Suspect]
     Active Substance: TREPROSTINIL
     Indication: Pulmonary arterial hypertension
     Dosage: UNK, CONTINUING
     Route: 058
     Dates: start: 20191022
  2. REMODULIN [Suspect]
     Active Substance: TREPROSTINIL
     Dosage: 0.0939 ?G/KG, CONTINUING
     Route: 058
  3. REMODULIN [Suspect]
     Active Substance: TREPROSTINIL
     Dosage: 0.0933 ?G/KG, CONTINUING (PUMP RATE 80 MCL/HR)
     Route: 058
     Dates: end: 202202
  4. REMODULIN [Suspect]
     Active Substance: TREPROSTINIL
     Dosage: 0.0939 ?G/KG, CONTINUING
     Route: 058
  5. REMODULIN [Suspect]
     Active Substance: TREPROSTINIL
     Dosage: 0.07042 ?G/KG, CONTINUING
     Route: 058

REACTIONS (8)
  - Abdominal pain [Unknown]
  - Hypervolaemia [Unknown]
  - Pulmonary arterial hypertension [Unknown]
  - Fluid retention [Unknown]
  - Respiration abnormal [Unknown]
  - Device infusion issue [Unknown]
  - Device power source issue [Recovered/Resolved]
  - Product supply issue [Unknown]

NARRATIVE: CASE EVENT DATE: 20220201
